FAERS Safety Report 9286770 (Version 4)
Quarter: 2013Q3

REPORT INFORMATION
  Report Type: Spontaneous
  Country: US (occurrence: US)
  Receive Date: 20130513
  Receipt Date: 20130906
  Transmission Date: 20140515
  Serious: Yes (Hospitalization)
  Sender: FDA-Public Use
  Company Number: US-ASTRAZENECA-2011SE04722

PATIENT
  Age: 77 Year
  Sex: Female

DRUGS (26)
  1. NEXIUM [Suspect]
     Indication: GASTROOESOPHAGEAL REFLUX DISEASE
     Route: 048
     Dates: end: 2009
  2. NEXIUM [Suspect]
     Indication: GASTROOESOPHAGEAL REFLUX DISEASE
     Route: 048
     Dates: end: 2009
  3. NEXIUM [Suspect]
     Indication: GASTROOESOPHAGEAL REFLUX DISEASE
     Route: 048
  4. NEXIUM [Suspect]
     Indication: GASTROOESOPHAGEAL REFLUX DISEASE
     Route: 048
  5. TOPROL XL [Suspect]
     Route: 048
  6. NORVASC [Concomitant]
  7. COLACE [Concomitant]
     Indication: FAECES HARD
  8. TEGRETOL [Concomitant]
     Indication: CONVULSION
  9. PLAVIX [Concomitant]
     Indication: ANTICOAGULANT THERAPY
  10. PEPCID [Concomitant]
     Indication: GASTRIC DISORDER
  11. LASIX [Concomitant]
     Indication: URINARY RETENTION
  12. THYROXINE [Concomitant]
     Indication: THYROID DISORDER
  13. ALTACE [Concomitant]
  14. SINEMET [Concomitant]
     Dosage: 25/250MG ONCE IN THE AM AND ONCE AT NIGHT
  15. SINEMET [Concomitant]
     Dosage: 25/100 ONCE IN THE PM
  16. REGLAN [Concomitant]
  17. WELCHOL [Concomitant]
     Indication: BLOOD CHOLESTEROL ABNORMAL
     Dosage: 625MG WITH EACH MEAL
  18. VITAMIN D [Concomitant]
     Indication: VITAMIN D DECREASED
     Dosage: ONCE A WEEK
  19. VITAMIN D [Concomitant]
     Indication: VITAMIN D DECREASED
     Dosage: TWICE A WEEK
  20. COQ10 [Concomitant]
     Indication: CARDIAC DISORDER
     Dosage: THREE TIMES A DAY
  21. ASPIRIN [Concomitant]
     Indication: CARDIAC DISORDER
  22. REQUIP [Concomitant]
  23. FISH OIL [Concomitant]
     Indication: BLOOD TRIGLYCERIDES ABNORMAL
  24. SIMVASTATIN [Concomitant]
     Indication: BLOOD CHOLESTEROL ABNORMAL
  25. ZOLOFT [Concomitant]
  26. RESTORIL [Concomitant]

REACTIONS (13)
  - Fall [Unknown]
  - Hip fracture [Unknown]
  - General symptom [Unknown]
  - Influenza [Unknown]
  - Weight decreased [Unknown]
  - Vitamin D decreased [Unknown]
  - Arthritis [Unknown]
  - Abdominal discomfort [Unknown]
  - Nausea [Unknown]
  - Vomiting [Unknown]
  - Drug dose omission [Unknown]
  - Intentional drug misuse [Unknown]
  - Intentional drug misuse [Unknown]
